FAERS Safety Report 8418954-5 (Version None)
Quarter: 2012Q2

REPORT INFORMATION
  Report Type: 
  Country: None (occurrence: None)
  Receive Date: 20120607
  Receipt Date: 20120531
  Transmission Date: 20120825
  Serious: Yes (Other)
  Sender: FDA-Public Use
  Company Number: PHHY2012NZ032555

PATIENT
  Age: 35 Year
  Sex: Female

DRUGS (8)
  1. CLOZAPINE [Suspect]
  2. OLANZAPINE [Suspect]
  3. AMISULPRIDE [Suspect]
     Dosage: 400 MG / DAY
  4. RISPERIDONE [Suspect]
  5. ARIPIPRAZOLE [Suspect]
     Dosage: 20 MG / DAY
  6. QUETIAPINE [Suspect]
  7. FLUPENTIXOL [Suspect]
  8. HALOPERIDOL [Suspect]

REACTIONS (7)
  - GALACTORRHOEA [None]
  - OLIGOMENORRHOEA [None]
  - ALOPECIA [None]
  - PITUITARY TUMOUR BENIGN [None]
  - HYPERPROLACTINAEMIA [None]
  - LIBIDO DECREASED [None]
  - BACK PAIN [None]
